FAERS Safety Report 14601416 (Version 2)
Quarter: 2018Q1

REPORT INFORMATION
  Report Type: Spontaneous
  Country: FR (occurrence: FR)
  Receive Date: 20180305
  Receipt Date: 20180307
  Transmission Date: 20180509
  Serious: Yes (Other)
  Sender: FDA-Public Use
  Company Number: FR-CONCORDIA PHARMACEUTICALS INC.-E2B_00010301

PATIENT
  Age: 36 Year
  Sex: Female
  Weight: 66 kg

DRUGS (4)
  1. PREDNISOLONE. [Suspect]
     Active Substance: PREDNISOLONE
     Indication: BRONCHITIS
     Route: 048
     Dates: start: 20180120, end: 20180125
  2. PIVALONE [Suspect]
     Active Substance: TIXOCORTOL PIVALATE
     Indication: BRONCHITIS
     Dosage: 1 PULV?RISATION 3X/JOUR
     Route: 048
     Dates: start: 20180120, end: 20180127
  3. ALMOTRIPTAN MYLAN 12,5 MG, COMPRIM? PELLICUL? (ALMOTRIPTAN) [Suspect]
     Active Substance: ALMOTRIPTAN
     Indication: MIGRAINE
     Route: 048
     Dates: start: 20180127, end: 20180129
  4. ROVAMYCINE 3 MILLIONS U I, COMPRIM? PELLICUL? (SPIRAMYCIN) [Suspect]
     Active Substance: SPIRAMYCIN
     Indication: BRONCHITIS
     Route: 048
     Dates: start: 20180120, end: 20180127

REACTIONS (4)
  - Affective disorder [Not Recovered/Not Resolved]
  - Paraesthesia [Not Recovered/Not Resolved]
  - Vertigo [Not Recovered/Not Resolved]
  - Choking [Not Recovered/Not Resolved]

NARRATIVE: CASE EVENT DATE: 20180129
